FAERS Safety Report 6750889-6 (Version None)
Quarter: 2010Q2

REPORT INFORMATION
  Report Type: 
  Country: None (occurrence: None)
  Receive Date: 20100528
  Receipt Date: 20100517
  Transmission Date: 20101027
  Serious: Yes (Hospitalization)
  Sender: FDA-Public Use
  Company Number: LEO-2010-00415

PATIENT
  Age: 70 Year
  Sex: Male

DRUGS (11)
  1. INNOHEP [Suspect]
     Indication: PHLEBITIS
     Dosage: 1 DOSAGE FORMS, SUBCUTANEOUS
     Route: 058
     Dates: start: 20091101, end: 20091105
  2. ORGARAN [Suspect]
     Dosage: 2 DOSAGE FORMS, SUBCUTANEOUS, 2 DOSAGE FORMS, SUBCUTANEOUS
     Route: 058
     Dates: start: 20091109, end: 20091111
  3. ORGARAN [Suspect]
     Dosage: 2 DOSAGE FORMS, SUBCUTANEOUS, 2 DOSAGE FORMS, SUBCUTANEOUS
     Route: 058
     Dates: start: 20091112, end: 20091116
  4. GLUCOPHAGE [Concomitant]
  5. HEXAQUINE (THIAMINE HYDROCHLORIDE, QUININE BENZOATE, MELALEUCA VIRIDIF [Concomitant]
  6. CADUET [Concomitant]
  7. DIGOXIN [Concomitant]
  8. LEVOTHYROXINE SODIUM [Concomitant]
  9. ISOPTIN [Concomitant]
  10. PAROXETINE HYDROCHLORIDE [Concomitant]
  11. PREVISCAN (FLUINDIONE) [Concomitant]

REACTIONS (2)
  - HEPARIN-INDUCED THROMBOCYTOPENIA [None]
  - ORAL DISORDER [None]
